FAERS Safety Report 22390378 (Version 3)
Quarter: 2023Q2

REPORT INFORMATION
  Report Type: Spontaneous
  Country: US (occurrence: US)
  Receive Date: 20230531
  Receipt Date: 20230606
  Transmission Date: 20230722
  Serious: No
  Sender: FDA-Public Use
  Company Number: US-PFIZER INC-PV202300096538

PATIENT
  Age: 83 Year
  Sex: Male
  Weight: 122.47 kg

DRUGS (21)
  1. VYNDAMAX [Suspect]
     Active Substance: TAFAMIDIS
     Dosage: 61 MG, 1X/DAY
  2. CYANOCOBALAMIN [Concomitant]
     Active Substance: CYANOCOBALAMIN
     Dosage: 250 UG
  3. FERROUS SULFATE [Concomitant]
     Active Substance: FERROUS SULFATE
     Dosage: 25 MG
     Route: 048
  4. FLOMAX [Concomitant]
     Active Substance: TAMSULOSIN HYDROCHLORIDE
     Dosage: 0.4 MG
     Route: 048
  5. TAMSULOSIN [Concomitant]
     Active Substance: TAMSULOSIN
     Indication: Prostatic disorder
     Dosage: 0.4 MG, (2 TABLETS)
  6. METAMUCIL THERAPY FOR REGULARITY [Concomitant]
     Active Substance: PSYLLIUM HUSK
     Dosage: EVERYDAY, 1 TABLESPOON A DAY
  7. METOPROLOL [Concomitant]
     Active Substance: METOPROLOL
     Dosage: 25 MG, 2 TABLETS BY MOUTH
     Route: 048
  8. METOLAZONE [Concomitant]
     Active Substance: METOLAZONE
     Dosage: 5 MG, 1X/DAY
  9. SPIRONOLACTONE [Concomitant]
     Active Substance: SPIRONOLACTONE
     Dosage: 25 MG 2 TABLETS A DAY
     Route: 048
  10. TRAZODONE HCL [Concomitant]
     Active Substance: TRAZODONE HYDROCHLORIDE
     Dosage: 50 MG, 1X/DAY
  11. CHOLECALCIFEROL [Concomitant]
     Active Substance: CHOLECALCIFEROL
     Dosage: 1 DF, DAILY
  12. OMEPRAZOLE [Concomitant]
     Active Substance: OMEPRAZOLE
     Indication: Abdominal discomfort
     Dosage: 20 MG, 2X/DAY
  13. PREGABALIN [Concomitant]
     Active Substance: PREGABALIN
     Dosage: 25 MG, 2X/DAY
  14. COUMADIN [Concomitant]
     Active Substance: WARFARIN SODIUM
     Indication: Blood disorder
     Dosage: 2 MG, AT BED TIME ON MONDAY, WEDNESDAY AND FRIDAY
     Route: 048
  15. COUMADIN [Concomitant]
     Active Substance: WARFARIN SODIUM
     Dosage: 4 MG, 1X/DAY THE OTHER DAYS
  16. WARFARIN [Concomitant]
     Active Substance: WARFARIN
     Indication: Blood disorder
     Dosage: AT BED TIME MONDAY, WEDNESDAY AND FRIDAY
  17. WARFARIN [Concomitant]
     Active Substance: WARFARIN
     Dosage: AT BED TIME EVERY TUESDAY
  18. BUMEX [Concomitant]
     Active Substance: BUMETANIDE
     Indication: Diuretic therapy
     Dosage: 2 MG, 2X/DAY (ONE AT NOON)
     Route: 048
  19. INSULIN NOS [Concomitant]
     Active Substance: INSULIN NOS
     Dosage: 25 IU, 2X/DAY
  20. POTASSIUM [Concomitant]
     Active Substance: POTASSIUM
     Dosage: PILLS 5 A DAY
  21. REQUIP [Concomitant]
     Active Substance: ROPINIROLE HYDROCHLORIDE
     Indication: Restless legs syndrome
     Dosage: AT NIGHT TIME

REACTIONS (1)
  - Fall [Unknown]
